FAERS Safety Report 9413805 (Version 2)
Quarter: 2013Q3

REPORT INFORMATION
  Report Type: Report from Study
  Country: NZ (occurrence: NZ)
  Receive Date: 20130723
  Receipt Date: 20130912
  Transmission Date: 20140515
  Serious: Yes (Hospitalization, Other)
  Sender: FDA-Public Use
  Company Number: PHHY2013NZ077903

PATIENT
  Sex: Male

DRUGS (8)
  1. CLOZARIL [Suspect]
     Indication: SCHIZOPHRENIA
     Dosage: UNK
  2. CLOZARIL [Suspect]
     Dosage: 500 MG, AT NIGHT
  3. LORAZEPAM [Concomitant]
     Dosage: 1 MG, NOCTE
     Route: 048
  4. ABILIFY [Concomitant]
     Dosage: 20 MG, MANE
     Route: 048
  5. SODIUM VALPROATE [Concomitant]
     Dosage: 1 G, NOCTE
     Route: 048
  6. OMEPRAZOLE [Concomitant]
     Dosage: 20 MG,OD
     Route: 048
  7. LAXSOL [Concomitant]
     Dosage: 2  TABS BD
     Route: 048
  8. LAXATIVE [Concomitant]
     Dosage: UNK

REACTIONS (5)
  - Abdominal pain [Unknown]
  - Gastrointestinal hypomotility [Unknown]
  - Constipation [Unknown]
  - Antipsychotic drug level increased [Unknown]
  - Hallucination [Unknown]
